FAERS Safety Report 6760164-1 (Version None)
Quarter: 2010Q2

REPORT INFORMATION
  Report Type: 
  Country: None (occurrence: None)
  Receive Date: 20100608
  Receipt Date: 20100527
  Transmission Date: 20101027
  Serious: Yes (Other)
  Sender: FDA-Public Use
  Company Number: FR-B.I. PHARMACEUTICALS,INC./RIDGEFIELD-2010-FF-00304FF

PATIENT

DRUGS (3)
  1. MOBIC [Suspect]
     Indication: DRUG EXPOSURE DURING PREGNANCY
     Dosage: 15 MG
     Route: 064
     Dates: start: 20100118, end: 20100123
  2. IBUPROFEN TABLETS [Suspect]
     Indication: DRUG EXPOSURE DURING PREGNANCY
     Route: 064
     Dates: start: 20100110, end: 20100111
  3. OPIOIDS [Concomitant]
     Indication: DRUG EXPOSURE DURING PREGNANCY

REACTIONS (2)
  - EXOMPHALOS [None]
  - MATERNAL DRUGS AFFECTING FOETUS [None]
